FAERS Safety Report 6177369-3 (Version None)
Quarter: 2009Q2

REPORT INFORMATION
  Report Type: 
  Country: None (occurrence: None)
  Receive Date: 20090504
  Receipt Date: 20090423
  Transmission Date: 20091009
  Serious: Yes (Hospitalization)
  Sender: FDA-Public Use
  Company Number: IT-BIOGENIDEC-2009BI012599

PATIENT
  Age: 33 Year
  Sex: Male
  Weight: 52 kg

DRUGS (6)
  1. TYSABRI [Suspect]
     Indication: MULTIPLE SCLEROSIS
     Route: 042
     Dates: start: 20080805
  2. CLONAZEPAM [Concomitant]
     Indication: MUSCLE SPASMS
     Route: 048
     Dates: start: 20081103
  3. PREGABALIN [Concomitant]
     Indication: MUSCLE SPASMS
     Route: 048
     Dates: start: 20051017
  4. VENLAFAXIN [Concomitant]
     Indication: DEPRESSION
     Route: 048
     Dates: start: 20040120
  5. LAMOTRIGINE [Concomitant]
     Indication: FACIAL SPASM
  6. MUSCLE RELAXANTS [Concomitant]

REACTIONS (1)
  - INTRATHECAL PUMP INSERTION [None]
